FAERS Safety Report 22528294 (Version 1)
Quarter: 2023Q2

REPORT INFORMATION
  Report Type: Spontaneous
  Country: IN (occurrence: IN)
  Receive Date: 20230607
  Receipt Date: 20230607
  Transmission Date: 20230722
  Serious: Yes (Other)
  Sender: FDA-Public Use
  Company Number: IN-002147023-NVSC2023IN126622

PATIENT
  Sex: Male

DRUGS (2)
  1. IMATINIB [Suspect]
     Active Substance: IMATINIB
     Indication: Chronic myeloid leukaemia
     Dosage: 400 MG, QD
     Route: 048
     Dates: start: 2012
  2. IMATINIB [Suspect]
     Active Substance: IMATINIB
     Dosage: 800 MG, QD
     Route: 048
     Dates: start: 2012, end: 2019

REACTIONS (2)
  - Appendicitis [Unknown]
  - Treatment failure [Unknown]
